FAERS Safety Report 9631782 (Version 7)
Quarter: 2016Q2

REPORT INFORMATION
  Report Type: Report from Study
  Country: US (occurrence: US)
  Receive Date: 20131018
  Receipt Date: 20160503
  Transmission Date: 20160815
  Serious: Yes (Hospitalization)
  Sender: FDA-Public Use
  Company Number: US-ROCHE-1265201

PATIENT
  Age: 47 Year
  Sex: Female

DRUGS (3)
  1. BENADRYL [Concomitant]
     Active Substance: DIPHENHYDRAMINE HYDROCHLORIDE
     Route: 065
  2. PEGASYS [Suspect]
     Active Substance: PEGINTERFERON ALFA-2A
     Indication: CHRONIC HEPATITIS C
     Route: 058
     Dates: start: 20130810, end: 20140117
  3. RIBAVIRIN. [Suspect]
     Active Substance: RIBAVIRIN
     Indication: CHRONIC HEPATITIS C
     Dosage: 800 MG PER DAY
     Route: 048
     Dates: start: 20130810

REACTIONS (18)
  - Pain [Unknown]
  - Back pain [Recovered/Resolved]
  - Agitation [Unknown]
  - Blood pressure increased [Unknown]
  - Sinusitis [Unknown]
  - Asthma [Unknown]
  - Nasopharyngitis [Unknown]
  - Speech disorder [Unknown]
  - Pneumonia [Unknown]
  - Bone pain [Unknown]
  - Pyrexia [Unknown]
  - Oral candidiasis [Unknown]
  - Drug dose omission [Unknown]
  - Myalgia [Unknown]
  - Peripheral swelling [Unknown]
  - Device issue [Unknown]
  - Fatigue [Unknown]
  - Vitamin D decreased [Unknown]

NARRATIVE: CASE EVENT DATE: 20131015
